FAERS Safety Report 5764460-6 (Version None)
Quarter: 2008Q2

REPORT INFORMATION
  Report Type: 
  Country: None (occurrence: None)
  Receive Date: 20080605
  Receipt Date: 20080521
  Transmission Date: 20081010
  Serious: Yes (Other)
  Sender: FDA-Public Use
  Company Number: 2007S1012722

PATIENT
  Age: 30 Year
  Sex: Female

DRUGS (1)
  1. ISOTRETINOIN [Suspect]
     Dosage: 40 MG; TWICE A DAY; ORAL
     Route: 048
     Dates: start: 20070830, end: 20071130

REACTIONS (6)
  - ABORTION INDUCED [None]
  - DRUG DOSE OMISSION [None]
  - DRUG EXPOSURE DURING PREGNANCY [None]
  - MATERNAL DRUGS AFFECTING FOETUS [None]
  - TREATMENT NONCOMPLIANCE [None]
  - UNINTENDED PREGNANCY [None]
